FAERS Safety Report 7427704-0 (Version None)
Quarter: 2011Q2

REPORT INFORMATION
  Report Type: 
  Country: None (occurrence: None)
  Receive Date: 20110421
  Receipt Date: 20110413
  Transmission Date: 20111010
  Serious: Yes (Other)
  Sender: FDA-Public Use
  Company Number: US-ASTRAZENECA-2009UW11317

PATIENT
  Age: 15146 Day
  Sex: Male
  Weight: 108.9 kg

DRUGS (18)
  1. SEROQUEL [Suspect]
     Dosage: 50-150 MG
     Route: 048
     Dates: start: 20070213
  2. LITHIUM [Concomitant]
     Dosage: 25-50 MG BID PRN
     Dates: end: 20070213
  3. OMEPRAZOLE [Concomitant]
     Dates: start: 20080507
  4. SEROQUEL [Suspect]
     Indication: POST-TRAUMATIC STRESS DISORDER
     Route: 048
     Dates: start: 20060101
  5. SEROQUEL [Suspect]
     Dosage: 50-150 MG
     Route: 048
     Dates: start: 20070213
  6. HYDROXYZINE [Concomitant]
     Dosage: 25-50 MG BID PRN
     Route: 048
     Dates: start: 20070213
  7. SEROQUEL [Suspect]
     Indication: AFFECTIVE DISORDER
     Route: 048
     Dates: start: 20060101
  8. SEROQUEL [Suspect]
     Indication: SLEEP DISORDER
     Route: 048
     Dates: start: 20060101
  9. ACETAMINOPHEN AND HYDROCODONE BITARTRATE [Concomitant]
     Indication: PAIN
     Dosage: 5-500 MG ONE TAB EVERY 6 HOURS
     Dates: start: 20080507
  10. TOPAMAX [Concomitant]
     Dates: start: 20080507
  11. SEROQUEL [Suspect]
     Dosage: 50-150 MG
     Route: 048
     Dates: start: 20070213
  12. SEROQUEL [Suspect]
     Dosage: 50-150 MG
     Route: 048
     Dates: start: 20070213
  13. XANAX [Concomitant]
     Indication: SLEEP DISORDER
     Dosage: 1-2 MG
     Dates: start: 20091203
  14. AMITRIPTYLINE HCL [Concomitant]
     Route: 048
     Dates: start: 20080507
  15. LISINOPRIL [Concomitant]
     Dates: start: 20080507
  16. SEROQUEL [Suspect]
     Indication: BIPOLAR DISORDER
     Route: 048
     Dates: start: 20060101
  17. ETODOLAC [Concomitant]
     Dates: start: 20080507
  18. GABAPENTIN [Concomitant]
     Dates: start: 20080507

REACTIONS (5)
  - NEUROPATHY PERIPHERAL [None]
  - WEIGHT INCREASED [None]
  - BLOOD TRIGLYCERIDES INCREASED [None]
  - DIABETES MELLITUS [None]
  - METABOLIC SYNDROME [None]
